FAERS Safety Report 7367076-3 (Version None)
Quarter: 2011Q1

REPORT INFORMATION
  Report Type: 
  Country: None (occurrence: None)
  Receive Date: 20110322
  Receipt Date: 20101214
  Transmission Date: 20110831
  Serious: No
  Sender: FDA-Public Use
  Company Number: US-TYCO HEALTHCARE/MALLINCKRODT-T201001865

PATIENT
  Sex: Male

DRUGS (1)
  1. METHADONE [Suspect]
     Dosage: UNK
     Route: 048
     Dates: start: 20100501, end: 20100501

REACTIONS (4)
  - EMOTIONAL DISTRESS [None]
  - NAUSEA [None]
  - DRUG INEFFECTIVE [None]
  - MALAISE [None]
